FAERS Safety Report 19945039 (Version 4)
Quarter: 2022Q4

REPORT INFORMATION
  Report Type: Report from Study
  Country: CO (occurrence: CO)
  Receive Date: 20211011
  Receipt Date: 20221118
  Transmission Date: 20230112
  Serious: Yes (Hospitalization)
  Sender: FDA-Public Use
  Company Number: CO-002147023-PHHY2019CO158055

PATIENT

DRUGS (3)
  1. RUXOLITINIB [Suspect]
     Active Substance: RUXOLITINIB
     Indication: Polycythaemia vera
     Dosage: 20 MG, QD
     Route: 048
  2. RUXOLITINIB [Suspect]
     Active Substance: RUXOLITINIB
     Dosage: 10 MG, Q12H
     Route: 048
     Dates: start: 20180328
  3. RUXOLITINIB [Suspect]
     Active Substance: RUXOLITINIB
     Dosage: 1 DF, QD
     Route: 048

REACTIONS (14)
  - Malaise [Unknown]
  - Fear [Unknown]
  - Bone pain [Unknown]
  - Dizziness [Unknown]
  - Feeling abnormal [Unknown]
  - Contusion [Unknown]
  - Headache [Unknown]
  - Pruritus [Unknown]
  - Ischaemia [Unknown]
  - Pain [Unknown]
  - Tachycardia [Unknown]
  - Inappropriate schedule of product administration [Unknown]
  - Product availability issue [Unknown]
  - Nausea [Unknown]
